FAERS Safety Report 9300416 (Version 1)
Quarter: 2012Q4

REPORT INFORMATION
  Report Type: Spontaneous
  Country: IT (occurrence: None)
  Receive Date: 20121109
  Receipt Date: 20121109
  Transmission Date: 20130627
  Serious: Yes (Death)
  Sender: FDA-Public Use
  Company Number: 2012S1000410

PATIENT
  Age: 74 Year
  Sex: Male

DRUGS (3)
  1. CUBICIN (DAPTOMYCIN) [Suspect]
     Indication: ENDOCARDITIS
  2. CLARITHROMYCIN [Concomitant]
  3. RIFAMPICIN [Concomitant]

REACTIONS (1)
  - Aortic aneurysm rupture [None]
